FAERS Safety Report 9822028 (Version 1)
Quarter: 2014Q1

REPORT INFORMATION
  Report Type: Spontaneous
  Country: JP (occurrence: None)
  Receive Date: 20140115
  Receipt Date: 20140115
  Transmission Date: 20141002
  Serious: Yes (Hospitalization)
  Sender: FDA-Public Use
  Company Number: JP-ZYDUS-002468

PATIENT
  Age: 77 Year
  Sex: Female

DRUGS (2)
  1. DONEPEZIL (DONEPEZIL) [Suspect]
     Dosage: 10.00 MG
  2. MEMANTINE (MEMANTINE) [Suspect]
     Indication: PSYCHIATRIC SYMPTOM
     Dosage: 5.00 MG

REACTIONS (2)
  - Electrocardiogram PR prolongation [None]
  - Bradycardia [None]
